FAERS Safety Report 6801868-1 (Version None)
Quarter: 2010Q2

REPORT INFORMATION
  Report Type: 
  Country: None (occurrence: None)
  Receive Date: 20100629
  Receipt Date: 20100623
  Transmission Date: 20101027
  Serious: Yes (Other)
  Sender: FDA-Public Use
  Company Number: US-CEPHALON-2010002685

PATIENT
  Sex: Female
  Weight: 52 kg

DRUGS (7)
  1. NUVIGIL [Suspect]
     Indication: SEDATION
     Route: 048
     Dates: start: 20100428, end: 20100506
  2. CHANTIX [Suspect]
     Indication: TOBACCO USER
     Dates: start: 20100501, end: 20100501
  3. KLONOPIN [Concomitant]
  4. MS CONTIN [Concomitant]
  5. PERCOCET [Concomitant]
  6. TRAZODONE HYDROCHLORIDE [Concomitant]
  7. CYMBALTA [Concomitant]

REACTIONS (11)
  - ANGIOEDEMA [None]
  - ARTHRALGIA [None]
  - DRUG DISPENSING ERROR [None]
  - DRUG INTERACTION [None]
  - HEADACHE [None]
  - INTENTIONAL DRUG MISUSE [None]
  - OEDEMA PERIPHERAL [None]
  - PARAESTHESIA ORAL [None]
  - PHANTOM PAIN [None]
  - STEVENS-JOHNSON SYNDROME [None]
  - URTICARIA [None]
